FAERS Safety Report 18070955 (Version 1)
Quarter: 2020Q3

REPORT INFORMATION
  Report Type: Spontaneous
  Country: US (occurrence: US)
  Receive Date: 20200724
  Receipt Date: 20200724
  Transmission Date: 20201103
  Serious: Yes (Death)
  Sender: FDA-Public Use
  Company Number: None

PATIENT
  Age: 73 Year
  Sex: Male
  Weight: 173 kg

DRUGS (22)
  1. ACETAMINOPHEN. [Concomitant]
     Active Substance: ACETAMINOPHEN
  2. ETOMIDATE. [Concomitant]
     Active Substance: ETOMIDATE
  3. INSULIN [Concomitant]
     Active Substance: INSULIN NOS
  4. ASPIRIN. [Concomitant]
     Active Substance: ASPIRIN
  5. METOLAZONE. [Concomitant]
     Active Substance: METOLAZONE
  6. MIDAZOLAM. [Concomitant]
     Active Substance: MIDAZOLAM
  7. TOCILIZUMAB. [Concomitant]
     Active Substance: TOCILIZUMAB
  8. FUROSEMIDE. [Concomitant]
     Active Substance: FUROSEMIDE
  9. NOREPINEPHRINE. [Concomitant]
     Active Substance: NOREPINEPHRINE
  10. CARVEDILOL. [Concomitant]
     Active Substance: CARVEDILOL
  11. PROPOFOL. [Concomitant]
     Active Substance: PROPOFOL
  12. LANSOPRAZOLE. [Concomitant]
     Active Substance: LANSOPRAZOLE
  13. ENOXAPARIN [Concomitant]
     Active Substance: ENOXAPARIN
  14. AMLODIPINE [Concomitant]
     Active Substance: AMLODIPINE BESYLATE
  15. ALBUTEROL. [Concomitant]
     Active Substance: ALBUTEROL
  16. ROCURONIUM [Concomitant]
     Active Substance: ROCURONIUM BROMIDE
  17. ASCORBIC ACID (IV) [Concomitant]
  18. REMDESIVIR. [Suspect]
     Active Substance: REMDESIVIR
     Indication: COVID-19
     Dates: start: 20200620, end: 20200629
  19. FENTANYL. [Concomitant]
     Active Substance: FENTANYL
  20. LORAZAPAM [Concomitant]
     Active Substance: LORAZEPAM
  21. METHYLPREDNISOLONE. [Concomitant]
     Active Substance: METHYLPREDNISOLONE
  22. LOSARTAN. [Concomitant]
     Active Substance: LOSARTAN

REACTIONS (1)
  - Acute myocardial infarction [None]

NARRATIVE: CASE EVENT DATE: 20200718
